FAERS Safety Report 4909809-9 (Version None)
Quarter: 2006Q1

REPORT INFORMATION
  Report Type: 
  Country: None (occurrence: None)
  Receive Date: 20060208
  Receipt Date: 20060130
  Transmission Date: 20060701
  Serious: Yes (Hospitalization)
  Sender: FDA-Public Use
  Company Number: TPA2006A00014

PATIENT
  Age: 76 Year
  Sex: Female

DRUGS (10)
  1. ACTOS [Suspect]
     Indication: DIABETES MELLITUS NON-INSULIN-DEPENDENT
     Dosage: PER ORAL
     Route: 048
     Dates: start: 20050601
  2. BYETTA [Suspect]
     Indication: DIABETES MELLITUS NON-INSULIN-DEPENDENT
     Dosage: 5 MCG, 2 IN 1 D, SUBCUTANEOUS
     Route: 058
     Dates: start: 20050601, end: 20050701
  3. AMARYL [Suspect]
     Indication: DIABETES MELLITUS NON-INSULIN-DEPENDENT
  4. ASPIRIN [Suspect]
     Indication: DIABETES MELLITUS NON-INSULIN-DEPENDENT
  5. ASPIRIN [Suspect]
  6. CARVEDILOL [Suspect]
  7. ATORVASTATIN CALCIUM [Suspect]
  8. LISINOPRIL [Suspect]
  9. SERTRALINE HCL (SERTRALINE HYDROCHLORIDE) [Concomitant]
  10. LEVOTHYROXIN SODIUM (LEVOTHYROXIN SODIUM) [Concomitant]

REACTIONS (17)
  - ANAEMIA [None]
  - BLOOD GLUCOSE INCREASED [None]
  - CARDIAC MURMUR [None]
  - CEREBRAL CYST [None]
  - CEREBRAL VENTRICLE DILATATION [None]
  - DEPRESSED LEVEL OF CONSCIOUSNESS [None]
  - FEELING ABNORMAL [None]
  - GLYCOSYLATED HAEMOGLOBIN INCREASED [None]
  - HAEMATOMA [None]
  - HYDROCEPHALUS [None]
  - HYPOGLYCAEMIA [None]
  - NAUSEA [None]
  - NEUROGLYCOPENIA [None]
  - PURPURA [None]
  - THYROID DISORDER [None]
  - UNRESPONSIVE TO VERBAL STIMULI [None]
  - WEIGHT DECREASED [None]
